FAERS Safety Report 25761975 (Version 1)
Quarter: 2025Q3

REPORT INFORMATION
  Report Type: Spontaneous
  Country: EU (occurrence: EU)
  Receive Date: 20250904
  Receipt Date: 20250904
  Transmission Date: 20251020
  Serious: Yes (Hospitalization)
  Sender: MYLAN
  Company Number: None

PATIENT
  Age: 82 Year
  Sex: Male
  Weight: 59 kg

DRUGS (3)
  1. ATORVASTATIN [Suspect]
     Active Substance: ATORVASTATIN
     Indication: Dyslipidaemia
     Dosage: 1 DOSAGE FORM, QD
     Dates: end: 20240930
  2. EZETIMIBE [Suspect]
     Active Substance: EZETIMIBE
     Indication: Dyslipidaemia
     Dosage: 10 MILLIGRAM, QD
     Dates: end: 20250731
  3. EZETIMIBE [Suspect]
     Active Substance: EZETIMIBE
     Dosage: 10 MILLIGRAM, QD
     Dates: start: 20250806, end: 20250811

REACTIONS (1)
  - Autoimmune myositis [Recovering/Resolving]

NARRATIVE: CASE EVENT DATE: 20250731
